FAERS Safety Report 9899504 (Version 2)
Quarter: 2014Q1

REPORT INFORMATION
  Report Type: Spontaneous
  Country: US (occurrence: US)
  Receive Date: 20140214
  Receipt Date: 20140214
  Transmission Date: 20141002
  Serious: Yes (Other)
  Sender: FDA-Public Use
  Company Number: US-GE HEALTHCARE MEDICAL DIAGNOSTICS-OSCN-PR-0806S-0389

PATIENT
  Age: 54 Year
  Sex: Female

DRUGS (7)
  1. OMNISCAN [Suspect]
     Indication: INFECTION
     Route: 042
     Dates: start: 20041207, end: 20041207
  2. OMNISCAN [Suspect]
     Indication: HEADACHE
     Route: 042
     Dates: start: 20051227, end: 20051227
  3. OMNISCAN [Suspect]
     Indication: XANTHOPSIA
     Route: 042
     Dates: start: 20060504, end: 20060504
  4. OMNISCAN [Suspect]
     Indication: DIZZINESS
     Route: 042
     Dates: start: 20070306, end: 20070306
  5. OMNISCAN [Suspect]
     Indication: DYSARTHRIA
  6. GADOLINIUM (UNSPECIFIED) [Suspect]
     Indication: PRODUCT USED FOR UNKNOWN INDICATION
     Route: 042
     Dates: start: 20080502, end: 20080502
  7. MAGNEVIST [Suspect]
     Indication: PRODUCT USED FOR UNKNOWN INDICATION
     Route: 042
     Dates: start: 20060223, end: 20060223

REACTIONS (1)
  - Nephrogenic systemic fibrosis [Not Recovered/Not Resolved]
